FAERS Safety Report 17637852 (Version 1)
Quarter: 2020Q2

REPORT INFORMATION
  Report Type: Spontaneous
  Country: CA (occurrence: CA)
  Receive Date: 20200406
  Receipt Date: 20200406
  Transmission Date: 20200713
  Serious: Yes (Other)
  Sender: FDA-Public Use
  Company Number: None

PATIENT
  Age: 67 Year
  Sex: Female
  Weight: 76.05 kg

DRUGS (14)
  1. APO-AMLODIPINE 10MG TAB AMLODIPINE BESYLATE [Suspect]
     Active Substance: AMLODIPINE BESYLATE
     Indication: HYPERTENSION
     Dosage: ?          QUANTITY:10 TABLET(S);?
     Route: 048
     Dates: start: 20200316, end: 20200326
  2. MULTI-VITAMIN [Concomitant]
     Active Substance: .ALPHA.-TOCOPHEROL ACETATE, DL-\ASCORBIC ACID\CYANOCOBALAMIN\FLUORIDE ION\FOLIC ACID\NIACIN\PYRIDOXINE\RIBOFLAVIN\THIAMINE\VITAMIN A\VITAMIN D
  3. INFLAGUARD [Concomitant]
  4. GLUTAMINE POWDER [Concomitant]
  5. PROBIOTICS [Concomitant]
     Active Substance: PROBIOTICS NOS
  6. LUVOX [Concomitant]
     Active Substance: FLUVOXAMINE MALEATE
  7. UBIQUINOL [Concomitant]
     Active Substance: UBIQUINOL
  8. VITAMIN D3 [Concomitant]
     Active Substance: CHOLECALCIFEROL
  9. NAC (FREE FORM AMINO ACID) [Concomitant]
  10. IRON [Concomitant]
     Active Substance: IRON
  11. VITAMIN C [Concomitant]
     Active Substance: ASCORBIC ACID
  12. VIT K2 [Concomitant]
  13. BONE BASICS [Concomitant]
  14. GI FORMIULA [Concomitant]

REACTIONS (2)
  - Pruritus [None]
  - Wrong technique in product usage process [None]

NARRATIVE: CASE EVENT DATE: 20200324
